FAERS Safety Report 12253432 (Version 3)
Quarter: 2016Q2

REPORT INFORMATION
  Report Type: Report from Study
  Country: CA (occurrence: CA)
  Receive Date: 20160411
  Receipt Date: 20160516
  Transmission Date: 20160815
  Serious: Yes (Hospitalization, Other)
  Sender: FDA-Public Use
  Company Number: CA-AMGEN-CANSL2016043539

PATIENT
  Age: 82 Year
  Sex: Female

DRUGS (1)
  1. PROLIA [Suspect]
     Active Substance: DENOSUMAB
     Indication: OSTEOPOROSIS POSTMENOPAUSAL
     Dosage: 60 MG/ML, UNK
     Route: 065
     Dates: start: 20140326

REACTIONS (5)
  - Myocardial infarction [Unknown]
  - Impaired healing [Unknown]
  - Peripheral swelling [Unknown]
  - Skin ulcer [Unknown]
  - Mobility decreased [Unknown]

NARRATIVE: CASE EVENT DATE: 201602
